FAERS Safety Report 9881768 (Version 2)
Quarter: 2014Q1

REPORT INFORMATION
  Report Type: Spontaneous
  Country: US (occurrence: US)
  Receive Date: 20140207
  Receipt Date: 20140207
  Transmission Date: 20141002
  Serious: Yes (Hospitalization)
  Sender: FDA-Public Use
  Company Number: US-B.I. PHARMACEUTICALS,INC./RIDGEFIELD-2014-BI-01673BP

PATIENT
  Sex: Female
  Weight: 83.91 kg

DRUGS (3)
  1. PRADAXA [Suspect]
     Indication: ATRIAL FIBRILLATION
     Dates: start: 20120619, end: 20130426
  2. ARTHRITIS PAIN RELIEVER [Concomitant]
  3. PERCOCET [Concomitant]

REACTIONS (2)
  - Intraventricular haemorrhage [Unknown]
  - Hydrocephalus [Unknown]
